FAERS Safety Report 12758023 (Version 1)
Quarter: 2016Q3

REPORT INFORMATION
  Report Type: Spontaneous
  Country: US (occurrence: US)
  Receive Date: 20160919
  Receipt Date: 20160919
  Transmission Date: 20161109
  Serious: Yes (Hospitalization)
  Sender: FDA-Public Use
  Company Number: US-ENDO PHARMACEUTICALS INC.-2016-005682

PATIENT
  Sex: Female
  Weight: 57.66 kg

DRUGS (1)
  1. PREDNISONE TABLETS 10MG [Suspect]
     Active Substance: PREDNISONE
     Indication: PRODUCT USED FOR UNKNOWN INDICATION
     Route: 048
     Dates: start: 2010

REACTIONS (6)
  - Confusional state [Unknown]
  - Movement disorder [Unknown]
  - Thought blocking [Unknown]
  - Brain oedema [Unknown]
  - Overdose [Unknown]
  - Lack of spontaneous speech [Unknown]
